FAERS Safety Report 10247902 (Version 1)
Quarter: 2014Q2

REPORT INFORMATION
  Report Type: Spontaneous
  Country: US (occurrence: US)
  Receive Date: 20140619
  Receipt Date: 20140619
  Transmission Date: 20141212
  Serious: Yes (Hospitalization, Other)
  Sender: FDA-Public Use
  Company Number: US-ACTAVIS-2014-13768

PATIENT
  Age: 30 Year
  Sex: Female

DRUGS (3)
  1. SERTRALINE HYDROCHLORIDE (WATSON LABORATORIES) [Suspect]
     Indication: MAJOR DEPRESSION
     Dosage: 125 MG, DAILY
     Route: 065
  2. SERTRALINE HYDROCHLORIDE (WATSON LABORATORIES) [Interacting]
     Dosage: 50 MG, DAILY
     Route: 065
  3. ZIPRASIDONE (UNKNOWN) [Interacting]
     Indication: MAJOR DEPRESSION
     Dosage: 40 MG, DAILY
     Route: 065

REACTIONS (2)
  - Serotonin syndrome [Recovered/Resolved]
  - Drug interaction [Recovered/Resolved]
